FAERS Safety Report 6039213-4 (Version None)
Quarter: 2009Q1

REPORT INFORMATION
  Report Type: 
  Country: None (occurrence: None)
  Receive Date: 20090115
  Receipt Date: 20090108
  Transmission Date: 20090719
  Serious: No
  Sender: FDA-Public Use
  Company Number: US-B.I. PHARMACEUTICALS,INC./RIDGEFIELD-2008-BP-18469BP

PATIENT
  Sex: Female

DRUGS (4)
  1. SPIRIVA [Suspect]
     Indication: CHRONIC OBSTRUCTIVE PULMONARY DISEASE
     Dosage: 18MCG
     Route: 055
     Dates: start: 20020101
  2. MICARDIS [Concomitant]
     Indication: HYPERTENSION
  3. DIOXIDE WATER PILL [Concomitant]
  4. JUICE PLUS [Concomitant]

REACTIONS (2)
  - ASTHMA [None]
  - DYSPNOEA [None]
